FAERS Safety Report 25893509 (Version 1)
Quarter: 2025Q4

REPORT INFORMATION
  Report Type: Spontaneous
  Country: CN (occurrence: CN)
  Receive Date: 20251008
  Receipt Date: 20251008
  Transmission Date: 20260117
  Serious: Yes (Hospitalization, Other)
  Sender: BAXTER
  Company Number: None

PATIENT
  Age: 65 Year
  Sex: Female
  Weight: 66 kg

DRUGS (12)
  1. CYCLOPHOSPHAMIDE [Suspect]
     Active Substance: CYCLOPHOSPHAMIDE
     Indication: Breast cancer female
     Dosage: 0.7 G, QD WITH NS 100 ML, IVGTT
     Route: 041
     Dates: start: 20250919, end: 20250919
  2. SODIUM CHLORIDE [Suspect]
     Active Substance: SODIUM CHLORIDE
     Dosage: 100 ML, QD, 0.9% NORMAL SALINE (WITH ONDANSETRON HYDROCHLORIDE)
     Route: 041
     Dates: start: 20250918, end: 20250923
  3. SODIUM CHLORIDE [Suspect]
     Active Substance: SODIUM CHLORIDE
     Dosage: 250 ML, QD, 0.9% NORMAL SALINE (WITH CIMETIDINE)
     Route: 041
     Dates: start: 20250918, end: 20250925
  4. SODIUM CHLORIDE [Suspect]
     Active Substance: SODIUM CHLORIDE
     Dosage: 100 ML, ONCE, 0.9% NORMAL SALINE (WITH DEXAMETHASONE SODIUM PHOSPHATE)
     Route: 041
     Dates: start: 20250919
  5. DOCETAXEL [Suspect]
     Active Substance: DOCETAXEL
     Indication: Breast cancer female
     Dosage: 90 MG, QD, IVGTT
     Route: 041
     Dates: start: 20250919, end: 20250919
  6. SODIUM CHLORIDE [Suspect]
     Active Substance: SODIUM CHLORIDE
     Indication: Medication dilution
     Dosage: 100 ML, QD (WITH CYCLOPHOSPHAMIDE)
     Route: 041
     Dates: start: 20250919, end: 20250919
  7. SODIUM CHLORIDE [Suspect]
     Active Substance: SODIUM CHLORIDE
     Dosage: 250 ML, QD (WITH DOCETAXEL)
     Route: 041
     Dates: start: 20250919, end: 20250919
  8. DEXAMETHASONE ACETATE [Concomitant]
     Active Substance: DEXAMETHASONE ACETATE
     Indication: Prophylaxis
     Dosage: 7.5 MG, BID
     Route: 048
     Dates: start: 20250918, end: 20250920
  9. ONDANSETRON HYDROCHLORIDE [Concomitant]
     Active Substance: ONDANSETRON HYDROCHLORIDE
     Indication: Prophylaxis
     Dosage: 8 MG, QD, IVGTT
     Route: 041
     Dates: start: 20250918, end: 20250923
  10. CIMETIDINE [Concomitant]
     Active Substance: CIMETIDINE
     Indication: Prophylaxis
     Dosage: 0.2 G, QD, IVGTT
     Route: 041
     Dates: start: 20250918, end: 20250925
  11. DEXAMETHASONE SODIUM PHOSPHATE [Concomitant]
     Active Substance: DEXAMETHASONE SODIUM PHOSPHATE
     Indication: Prophylaxis
     Dosage: 10 MG, ONCE
     Route: 041
     Dates: start: 20250919
  12. PROMETHAZINE HYDROCHLORIDE [Concomitant]
     Active Substance: PROMETHAZINE HYDROCHLORIDE
     Indication: Prophylaxis of nausea and vomiting
     Dosage: 25 MG, ONCE
     Route: 030
     Dates: start: 20250919

REACTIONS (8)
  - Colitis [Recovering/Resolving]
  - Abdominal pain [Recovering/Resolving]
  - Nausea [Recovering/Resolving]
  - Vomiting [Recovering/Resolving]
  - Diarrhoea [Recovering/Resolving]
  - Decreased appetite [Recovering/Resolving]
  - Gastrointestinal wall thickening [Unknown]
  - Pyrexia [Recovering/Resolving]

NARRATIVE: CASE EVENT DATE: 20250920
